FAERS Safety Report 24850965 (Version 1)
Quarter: 2025Q1

REPORT INFORMATION
  Report Type: Spontaneous
  Country: US (occurrence: US)
  Receive Date: 20250116
  Receipt Date: 20250116
  Transmission Date: 20250409
  Serious: Yes (Hospitalization)
  Sender: SK LIFE SCIENCE
  Company Number: US-SK LIFE SCIENCE, INC.-SKPVG-2024-000555

PATIENT

DRUGS (5)
  1. XCOPRI [Suspect]
     Active Substance: CENOBAMATE
     Indication: Epilepsy
     Route: 048
  2. XCOPRI [Suspect]
     Active Substance: CENOBAMATE
     Dosage: 200 MILLIGRAM, QD
     Route: 048
  3. VIMPAT [Suspect]
     Active Substance: LACOSAMIDE
     Indication: Product used for unknown indication
     Route: 065
  4. VIMPAT [Suspect]
     Active Substance: LACOSAMIDE
     Route: 065
  5. VIMPAT [Suspect]
     Active Substance: LACOSAMIDE
     Dosage: 100MG IN THE MORNING, AND 200MG AT NIGHT
     Route: 065

REACTIONS (1)
  - Dizziness [Recovered/Resolved]
